FAERS Safety Report 12658442 (Version 3)
Quarter: 2018Q3

REPORT INFORMATION
  Report Type: Spontaneous
  Country: US (occurrence: US)
  Receive Date: 20160817
  Receipt Date: 20180920
  Transmission Date: 20181010
  Serious: No
  Sender: FDA-Public Use
  Company Number: US-009507513-1608USA005168

PATIENT
  Age: 77 Year
  Sex: Female

DRUGS (3)
  1. DULERA [Suspect]
     Active Substance: FORMOTEROL FUMARATE DIHYDRATE\MOMETASONE FUROATE
     Indication: PNEUMONITIS
     Dosage: 200/5 MICROGRAMS (FREQUENCY UNSPECIFIED)
     Route: 055
  2. OXYGEN. [Concomitant]
     Active Substance: OXYGEN
     Dosage: UNK
  3. DULERA [Suspect]
     Active Substance: FORMOTEROL FUMARATE DIHYDRATE\MOMETASONE FUROATE
     Dosage: UNK
     Route: 055
     Dates: start: 2018

REACTIONS (6)
  - Product use in unapproved indication [Unknown]
  - Accidental underdose [Unknown]
  - Dyspnoea [Not Recovered/Not Resolved]
  - Product quality issue [Unknown]
  - Product quality issue [Unknown]
  - Drug dose omission [Unknown]

NARRATIVE: CASE EVENT DATE: 2018
